FAERS Safety Report 18030487 (Version 2)
Quarter: 2021Q2

REPORT INFORMATION
  Report Type: Spontaneous
  Country: HR (occurrence: HR)
  Receive Date: 20200716
  Receipt Date: 20210628
  Transmission Date: 20210717
  Serious: Yes (Life-Threatening, Hospitalization)
  Sender: FDA-Public Use
  Company Number: HR-TEVA-2020-HR-1800317

PATIENT
  Age: 73 Year
  Sex: Male

DRUGS (5)
  1. PIPERACILLIN/TAZOBACTAM [Suspect]
     Active Substance: PIPERACILLIN SODIUM\TAZOBACTAM SODIUM
     Indication: PSEUDOMONAS INFECTION
     Dosage: 3 X 4.5 G DAILY; DOSAGE REDUCED TO 3 X 2.25 G A DAY ON HOSPITAL DAY 14 AND LATER DISCONTINUED
     Route: 050
  2. ENOXAPARIN [Suspect]
     Active Substance: ENOXAPARIN
     Indication: CARDIAC VENTRICULAR THROMBOSIS
     Route: 065
  3. CLOPIDOGREL [Suspect]
     Active Substance: CLOPIDOGREL BISULFATE
     Indication: CARDIAC VENTRICULAR THROMBOSIS
     Route: 065
  4. ASPIRIN. [Suspect]
     Active Substance: ASPIRIN
     Indication: CARDIAC VENTRICULAR THROMBOSIS
     Route: 065
  5. PIPERACILLIN/TAZOBACTAM [Suspect]
     Active Substance: PIPERACILLIN SODIUM\TAZOBACTAM SODIUM
     Indication: PNEUMONIA

REACTIONS (6)
  - Haematochezia [Recovered/Resolved]
  - Platelet dysfunction [Recovered/Resolved]
  - Toxicity to various agents [Recovered/Resolved]
  - Pulmonary haemorrhage [Recovered/Resolved]
  - Haematuria [Recovered/Resolved]
  - Haemoptysis [Recovered/Resolved]
